FAERS Safety Report 5880686-5 (Version None)
Quarter: 2008Q3

REPORT INFORMATION
  Report Type: 
  Country: None (occurrence: None)
  Receive Date: 20080912
  Receipt Date: 20080604
  Transmission Date: 20090109
  Serious: No
  Sender: FDA-Public Use
  Company Number: US-ABBOTT-08P-163-0455245-00

PATIENT
  Sex: Female
  Weight: 72.186 kg

DRUGS (9)
  1. HUMIRA [Suspect]
     Indication: PSORIASIS
     Route: 058
     Dates: start: 20080428, end: 20080428
  2. HUMIRA [Suspect]
     Route: 058
     Dates: end: 20080508
  3. HUMIRA [Suspect]
  4. METHOTREXATE [Concomitant]
     Indication: PSORIASIS
     Dosage: 2.5MG,7PILLS WEEKLY,DIVIDED OVER SAT+SUN
     Route: 048
     Dates: start: 20080425
  5. DIOVAN HCT [Concomitant]
     Indication: HYPERTENSION
     Dosage: 320/25, ONE DAILY
     Route: 048
     Dates: start: 20080301
  6. ATENOLOL [Concomitant]
     Indication: HYPERTENSION
     Route: 048
     Dates: start: 20080507
  7. ATORVASTATIN CALCIUM [Concomitant]
     Indication: BLOOD CHOLESTEROL INCREASED
     Route: 048
  8. CITALOPRAM HYDROBROMIDE [Concomitant]
     Indication: DEPRESSION
     Route: 048
  9. PANTOPRAZOLE [Concomitant]
     Indication: GASTROOESOPHAGEAL REFLUX DISEASE
     Route: 048
     Dates: start: 20070101, end: 20080201

REACTIONS (2)
  - INAPPROPRIATE SCHEDULE OF DRUG ADMINISTRATION [None]
  - STAPHYLOCOCCAL INFECTION [None]
